FAERS Safety Report 8908140 (Version 1)
Quarter: 2012Q4

REPORT INFORMATION
  Report Type: 
  Country: US (occurrence: US)
  Receive Date: 20121114
  Receipt Date: 20121114
  Transmission Date: 20130627
  Serious: No
  Sender: FDA-Public Use
  Company Number: US-PFIZER INC-2012284008

PATIENT
  Age: 47 Year
  Sex: Female
  Weight: 54.42 kg

DRUGS (1)
  1. NEURONTIN [Suspect]
     Indication: POLYNEUROPATHY
     Dosage: 300 mg, daily
     Dates: start: 20121012

REACTIONS (1)
  - Burning sensation [Recovered/Resolved]
